FAERS Safety Report 6003707-8 (Version None)
Quarter: 2008Q4

REPORT INFORMATION
  Report Type: 
  Country: None (occurrence: None)
  Receive Date: 20081212
  Receipt Date: 20081203
  Transmission Date: 20090506
  Serious: Yes (Other)
  Sender: FDA-Public Use
  Company Number: 20693

PATIENT
  Age: 44 Year
  Sex: Female

DRUGS (15)
  1. METHYLENE BLUE [Suspect]
     Indication: PREOPERATIVE CARE
  2. METHYLENE BLUE [Suspect]
     Indication: SCAN PARATHYROID
  3. CITALOPRAM [Suspect]
     Indication: DRUG USE FOR UNKNOWN INDICATION
     Dosage: 20 MG DAILY PO
     Route: 048
  4. ASPIRIN [Concomitant]
  5. ATENOLOL [Concomitant]
  6. BENDROFLUMETHIAZIDE [Concomitant]
  7. DEXAMETHASONE [Concomitant]
  8. FELODIPINE [Concomitant]
  9. ISOSORBIDE MONONITRATE [Concomitant]
  10. MORPHINE [Concomitant]
  11. PROPOFOL [Concomitant]
  12. REMIFENTANIL [Concomitant]
  13. ROCURONIUM BROMIDE [Concomitant]
  14. SIMVASTATIN [Concomitant]
  15. SODIUM CHLORIDE [Concomitant]

REACTIONS (8)
  - BLOOD PHOSPHORUS INCREASED [None]
  - DRUG INTERACTION [None]
  - INCOHERENT [None]
  - INFLAMMATION [None]
  - MYDRIASIS [None]
  - PUPILLARY REFLEX IMPAIRED [None]
  - SEROTONIN SYNDROME [None]
  - WHITE BLOOD CELL COUNT INCREASED [None]
